FAERS Safety Report 7716595-6 (Version None)
Quarter: 2011Q3

REPORT INFORMATION
  Report Type: 
  Country: None (occurrence: None)
  Receive Date: 20110829
  Receipt Date: 20110418
  Transmission Date: 20111222
  Serious: No
  Sender: FDA-Public Use
  Company Number: US-GLAXOSMITHKLINE-A0924242A

PATIENT
  Age: 57 Year
  Sex: Female

DRUGS (1)
  1. BECONASE [Suspect]
     Indication: PRODUCT USED FOR UNKNOWN INDICATION
     Dosage: 42MCG UNKNOWN
     Route: 045
     Dates: start: 20090217

REACTIONS (1)
  - SINUS DISORDER [None]
